FAERS Safety Report 11301431 (Version 1)
Quarter: 2015Q3

REPORT INFORMATION
  Report Type: Spontaneous
  Country: US (occurrence: US)
  Receive Date: 20150722
  Receipt Date: 20150722
  Transmission Date: 20151125
  Serious: No
  Sender: FDA-Public Use
  Company Number: US-ELI_LILLY_AND_COMPANY-US201002000415

PATIENT
  Sex: Female

DRUGS (3)
  1. SYNTHROID [Concomitant]
     Active Substance: LEVOTHYROXINE SODIUM
     Dosage: 100 UG, DAILY (1/D)
  2. HUMATROPE [Suspect]
     Active Substance: SOMATROPIN
     Indication: HYPOPITUITARISM
     Dosage: 6 MG, DAILY (1/D)
     Route: 058
  3. HUMATROPE [Suspect]
     Active Substance: SOMATROPIN
     Dosage: 0.6 MG, DAILY (1/D)

REACTIONS (6)
  - Oedema [Unknown]
  - Joint stiffness [Recovered/Resolved]
  - Oedema peripheral [Recovered/Resolved]
  - Carpal tunnel syndrome [Recovered/Resolved]
  - Underdose [Recovered/Resolved]
  - Joint stiffness [Unknown]
